FAERS Safety Report 18356629 (Version 1)
Quarter: 2020Q4

REPORT INFORMATION
  Report Type: Spontaneous
  Country: US (occurrence: US)
  Receive Date: 20201007
  Receipt Date: 20201007
  Transmission Date: 20210114
  Serious: No
  Sender: FDA-Public Use
  Company Number: US-SPROUT PHARMACEUTICALS, INC.-2020SP000053

PATIENT
  Age: 43 Year
  Sex: Female
  Weight: 87.62 kg

DRUGS (3)
  1. NORTRIPTYLINE [Concomitant]
     Active Substance: NORTRIPTYLINE
     Indication: PRODUCT USED FOR UNKNOWN INDICATION
     Route: 048
  2. ADDYI [Suspect]
     Active Substance: FLIBANSERIN
     Indication: LIBIDO DECREASED
     Route: 048
     Dates: start: 20200525, end: 20200527
  3. MAXALT [Concomitant]
     Active Substance: RIZATRIPTAN BENZOATE
     Indication: MIGRAINE
     Route: 048

REACTIONS (4)
  - Migraine [Recovered/Resolved]
  - Headache [Recovered/Resolved]
  - Balance disorder [Unknown]
  - Initial insomnia [Unknown]

NARRATIVE: CASE EVENT DATE: 202005
